FAERS Safety Report 7156116-2 (Version None)
Quarter: 2010Q4

REPORT INFORMATION
  Report Type: 
  Country: None (occurrence: None)
  Receive Date: 20101214
  Receipt Date: 20101209
  Transmission Date: 20110411
  Serious: Yes (Death, Other)
  Sender: FDA-Public Use
  Company Number: US-AMGEN-QUU442406

PATIENT

DRUGS (2)
  1. NPLATE [Suspect]
     Indication: THROMBOCYTOPENIA
     Dosage: 160 A?G, UNK
     Dates: start: 20100413, end: 20100427
  2. NPLATE [Suspect]
     Dates: end: 20100427

REACTIONS (3)
  - DRUG INEFFECTIVE [None]
  - HAEMATOLOGICAL MALIGNANCY [None]
  - NON-HODGKIN'S LYMPHOMA [None]
